FAERS Safety Report 8437288-6 (Version None)
Quarter: 2012Q2

REPORT INFORMATION
  Report Type: 
  Country: None (occurrence: None)
  Receive Date: 20120614
  Receipt Date: 20120302
  Transmission Date: 20120825
  Serious: No
  Sender: FDA-Public Use
  Company Number: US-AMGEN-USASP2012014018

PATIENT
  Age: 59 Year
  Sex: Male

DRUGS (1)
  1. PROLIA [Suspect]
     Indication: METASTASES TO BONE
     Dosage: UNK
     Dates: start: 20120201

REACTIONS (4)
  - PYREXIA [None]
  - PLATELET COUNT DECREASED [None]
  - BLOOD PHOSPHORUS DECREASED [None]
  - HYPOCALCAEMIA [None]
